FAERS Safety Report 7590608-7 (Version None)
Quarter: 2011Q3

REPORT INFORMATION
  Report Type: 
  Country: None (occurrence: None)
  Receive Date: 20110705
  Receipt Date: 20110628
  Transmission Date: 20111222
  Serious: Yes (Other)
  Sender: FDA-Public Use
  Company Number: US-PFIZER INC-2011105858

PATIENT
  Sex: Male
  Weight: 112 kg

DRUGS (22)
  1. TOPROL-XL [Concomitant]
     Indication: HYPERTENSION
     Dosage: 100 MG, 1X/DAY
     Route: 048
  2. BENICAR HCT [Concomitant]
     Indication: HYPERTENSION
     Dosage: 40/25MG DAILY
     Route: 048
  3. LOVASTATIN [Concomitant]
     Indication: BLOOD CHOLESTEROL INCREASED
     Dosage: 20 MG, 1X/DAY
     Route: 048
     Dates: end: 20110501
  4. CAMPRAL [Concomitant]
     Dosage: UNK
  5. TAMSULOSIN [Concomitant]
     Indication: URINARY TRACT INFECTION
     Dosage: 0.5 MG, 1X/DAY
     Route: 048
     Dates: end: 20110501
  6. EFFEXOR [Concomitant]
     Indication: MAJOR DEPRESSION
     Dosage: 150 MG, 1X/DAY
     Route: 048
  7. ULTRAM [Concomitant]
     Indication: ARTHRALGIA
     Dosage: 60 MG, 2X/DAY
     Route: 048
     Dates: end: 20110501
  8. EFFEXOR XR [Concomitant]
     Indication: MAJOR DEPRESSION
     Dosage: UNK
  9. CHANTIX [Suspect]
     Indication: SMOKING CESSATION THERAPY
     Dosage: 0.5 MG, DAILY
     Route: 048
     Dates: start: 20110513
  10. COMBIVENT [Concomitant]
     Indication: ASTHMA
     Dosage: TO PUFFS TWICE DAILY AS NEEDED
  11. LOVASTATIN [Concomitant]
     Dosage: 40 MG
     Route: 048
  12. VISTARIL [Concomitant]
     Indication: ANXIETY
     Dosage: 50 MG, 3X/DAY
     Route: 048
  13. NAPROXEN [Concomitant]
     Indication: ARTHRALGIA
     Dosage: 500 MG, 2X/DAY
     Route: 048
     Dates: end: 20110501
  14. SYMBICORT [Concomitant]
     Indication: ASTHMA
     Dosage: 160/4.5MCG TWICE DAILY
  15. CAMPRAL [Concomitant]
     Indication: ALCOHOLISM
     Dosage: 666 MG, 3X/DAY
     Route: 048
  16. NEURONTIN [Concomitant]
     Indication: ARTHRALGIA
     Dosage: 400 MG, 3X/DAY
  17. TOPROL-XL [Concomitant]
     Dosage: UNK
  18. SYMBICORT [Concomitant]
     Dosage: UNK
  19. NAPROXEN [Concomitant]
     Indication: BONE DISORDER
     Dosage: 500 MG, 3X/DAY
     Route: 048
  20. COMBIVENT [Concomitant]
     Dosage: UNK
  21. ULTRAM [Concomitant]
     Indication: BONE DISORDER
     Dosage: 50 MG, 3X/DAY
     Route: 048
  22. TAMSULOSIN [Concomitant]
     Dosage: 0.4 MG
     Route: 048

REACTIONS (3)
  - DYSPHAGIA [None]
  - PHARYNGEAL OEDEMA [None]
  - OROPHARYNGEAL BLISTERING [None]
